FAERS Safety Report 10581582 (Version 6)
Quarter: 2015Q1

REPORT INFORMATION
  Report Type: Spontaneous
  Country: DE (occurrence: DE)
  Receive Date: 20141113
  Receipt Date: 20150306
  Transmission Date: 20150720
  Serious: Yes (Hospitalization, Other)
  Sender: FDA-Public Use
  Company Number: DE-SA-2014SA153504

PATIENT
  Age: 47 Year
  Sex: Male
  Weight: 80 kg

DRUGS (4)
  1. TIZANIDINE (TIZANIDINE) [Concomitant]
     Active Substance: TIZANIDINE
     Dosage: STRENGTH: 2 MG
     Dates: start: 201412
  2. AUBAGIO [Suspect]
     Active Substance: TERIFLUNOMIDE
     Indication: RELAPSING-REMITTING MULTIPLE SCLEROSIS
     Route: 048
     Dates: start: 201406
  3. DEXAMYTREX [Concomitant]
     Route: 047
     Dates: start: 201410
  4. BACLOFEN. [Concomitant]
     Active Substance: BACLOFEN
     Dosage: STRENGTH:25 MG
     Dates: start: 201410, end: 201412

REACTIONS (5)
  - Central nervous system lesion [Unknown]
  - Retinal detachment [Recovered/Resolved]
  - Vision blurred [Recovered/Resolved]
  - Paraesthesia [Unknown]
  - Visual field defect [Recovered/Resolved]

NARRATIVE: CASE EVENT DATE: 20141012
